FAERS Safety Report 13921468 (Version 4)
Quarter: 2017Q4

REPORT INFORMATION
  Report Type: Spontaneous
  Country: JP (occurrence: JP)
  Receive Date: 20170830
  Receipt Date: 20171030
  Transmission Date: 20180320
  Serious: No
  Sender: FDA-Public Use
  Company Number: JP-PFIZER INC-2017374011

PATIENT
  Age: 61 Year
  Sex: Female

DRUGS (5)
  1. LYRICA [Concomitant]
     Active Substance: PREGABALIN
     Dosage: 50 MG, 1X/DAY
     Route: 048
     Dates: start: 20170221
  2. CELECOX [Suspect]
     Active Substance: CELECOXIB
     Indication: ANALGESIC THERAPY
     Dosage: 200 MG, 1X/DAY
     Route: 048
     Dates: start: 20170322, end: 20170822
  3. CALONAL [Concomitant]
     Active Substance: ACETAMINOPHEN
     Dosage: 2000 MG, 1X/DAY
     Route: 048
     Dates: start: 20170221
  4. SARPOGRELATE [Concomitant]
     Active Substance: SARPOGRELATE
     Dosage: 300 MG, 1X/DAY
     Route: 048
     Dates: start: 20170221
  5. TAKECAB [Concomitant]
     Active Substance: VONOPRAZAN FUMURATE
     Dosage: 10 MG, 1X/DAY
     Route: 048
     Dates: start: 20170221

REACTIONS (1)
  - Dysarthria [Unknown]

NARRATIVE: CASE EVENT DATE: 201704
